FAERS Safety Report 7824637-2 (Version None)
Quarter: 2011Q4

REPORT INFORMATION
  Report Type: 
  Country: None (occurrence: None)
  Receive Date: 20111019
  Receipt Date: 20110824
  Transmission Date: 20120403
  Serious: Yes (Life-Threatening, Other)
  Sender: FDA-Public Use
  Company Number: FR-SANOFI-AVENTIS-2011SA054192

PATIENT
  Age: 21 Year
  Sex: Female

DRUGS (6)
  1. DEPAKOTE [Suspect]
     Route: 048
     Dates: start: 20110810
  2. ZOLPIDEM [Suspect]
     Route: 048
     Dates: start: 20110802
  3. TRIPHASIL-21 [Suspect]
  4. XANAX [Suspect]
  5. FERROUS SULFATE TAB [Suspect]
  6. ESCITALOPRAM OXALATE [Suspect]
     Route: 048
     Dates: start: 20110728

REACTIONS (3)
  - EOSINOPHILIC PNEUMONIA [None]
  - DYSPNOEA [None]
  - ACUTE RESPIRATORY DISTRESS SYNDROME [None]
